FAERS Safety Report 14615694 (Version 4)
Quarter: 2018Q2

REPORT INFORMATION
  Report Type: Spontaneous
  Country: FR (occurrence: FR)
  Receive Date: 20180309
  Receipt Date: 20180507
  Transmission Date: 20180711
  Serious: Yes (Death, Other)
  Sender: FDA-Public Use
  Company Number: FR-ROCHE-2086477

PATIENT
  Age: 40 Year
  Sex: Male

DRUGS (6)
  1. OXAZEPAM. [Interacting]
     Active Substance: OXAZEPAM
     Indication: PRODUCT USED FOR UNKNOWN INDICATION
     Route: 065
  2. THC [Suspect]
     Active Substance: DRONABINOL
     Indication: PRODUCT USED FOR UNKNOWN INDICATION
     Dosage: UNK
     Route: 065
  3. CLONAZEPAM. [Suspect]
     Active Substance: CLONAZEPAM
     Indication: PRODUCT USED FOR UNKNOWN INDICATION
     Route: 065
  4. BUPRENORPHINE. [Interacting]
     Active Substance: BUPRENORPHINE
     Indication: DRUG DEPENDENCE
     Route: 060
  5. BUPRENORPHINE. [Interacting]
     Active Substance: BUPRENORPHINE
     Route: 060
  6. ALCOHOL. [Suspect]
     Active Substance: ALCOHOL
     Indication: PRODUCT USED FOR UNKNOWN INDICATION
     Route: 065

REACTIONS (9)
  - Alcohol abuse [Fatal]
  - Respiratory failure [Fatal]
  - Brain oedema [Fatal]
  - Fatigue [Unknown]
  - Respiratory depression [Fatal]
  - Toxicity to various agents [Fatal]
  - Asphyxia [Fatal]
  - Pulmonary oedema [Fatal]
  - Drug interaction [Fatal]
